FAERS Safety Report 5541373-6 (Version None)
Quarter: 2007Q4

REPORT INFORMATION
  Report Type: 
  Country: None (occurrence: None)
  Receive Date: 20071209
  Receipt Date: 20061214
  Transmission Date: 20080405
  Serious: No
  Sender: FDA-Public Use
  Company Number: US-AMGEN-KDL203680

PATIENT
  Sex: Male

DRUGS (3)
  1. ENBREL [Suspect]
     Indication: PSORIATIC ARTHROPATHY
     Route: 058
     Dates: start: 20061121
  2. ENBREL [Suspect]
     Indication: PSORIASIS
  3. AZULFIDINE EN-TABS [Concomitant]
     Dates: start: 19830101

REACTIONS (2)
  - ASTHENOPIA [None]
  - INTRAOCULAR PRESSURE INCREASED [None]
